FAERS Safety Report 8090326-5 (Version None)
Quarter: 2012Q1

REPORT INFORMATION
  Report Type: 
  Country: None (occurrence: None)
  Receive Date: 20120129
  Receipt Date: 20111118
  Transmission Date: 20120608
  Serious: No
  Sender: FDA-Public Use
  Company Number: US-ABBOTT-11P-163-0875914-00

PATIENT
  Age: 47 Year
  Sex: Female

DRUGS (8)
  1. PLAQUENIL [Concomitant]
     Indication: POLYARTHRITIS
     Route: 048
  2. PLAQUENIL [Concomitant]
     Indication: COLITIS ULCERATIVE
  3. HUMIRA [Suspect]
     Indication: COLITIS ULCERATIVE
     Dates: start: 20110226
  4. CALTRATE [Concomitant]
     Indication: SUPPLEMENTATION THERAPY
  5. VERAPAMIL [Concomitant]
     Indication: SUPRAVENTRICULAR TACHYCARDIA
     Route: 048
  6. MULTI-VITAMINS [Concomitant]
     Indication: SUPPLEMENTATION THERAPY
     Route: 048
  7. ASACOL [Concomitant]
     Indication: COLITIS ULCERATIVE
     Dosage: 400 MG: 4 TABLETS TWICE DIALY
  8. ESTRADIOL [Concomitant]
     Indication: HORMONE REPLACEMENT THERAPY
     Route: 048

REACTIONS (3)
  - OROPHARYNGEAL PAIN [None]
  - PAIN [None]
  - BETA HAEMOLYTIC STREPTOCOCCAL INFECTION [None]
